FAERS Safety Report 17257643 (Version 1)
Quarter: 2019Q4

REPORT INFORMATION
  Report Type: Spontaneous
  Country: US (occurrence: US)
  Receive Date: 20191217
  Receipt Date: 20191217
  Transmission Date: 20200122
  Serious: No
  Sender: FDA-Public Use
  Company Number: None

PATIENT
  Age: 31 Year
  Sex: Male

DRUGS (1)
  1. TECFIDERA [Suspect]
     Active Substance: DIMETHYL FUMARATE
     Indication: MULTIPLE SCLEROSIS
     Route: 048
     Dates: start: 20191126

REACTIONS (5)
  - Confusional state [None]
  - Asthenia [None]
  - Balance disorder [None]
  - Disorientation [None]
  - Disturbance in attention [None]

NARRATIVE: CASE EVENT DATE: 201911
